FAERS Safety Report 12276048 (Version 1)
Quarter: 2016Q2

REPORT INFORMATION
  Report Type: Spontaneous
  Country: US (occurrence: None)
  Receive Date: 20160415
  Receipt Date: 20160415
  Transmission Date: 20160815
  Serious: Yes (Hospitalization)
  Sender: FDA-Public Use
  Company Number: None

PATIENT
  Age: 59 Year
  Sex: Female

DRUGS (1)
  1. IBRANCE [Suspect]
     Active Substance: PALBOCICLIB
     Indication: NEOPLASM MALIGNANT
     Route: 048
     Dates: start: 20160324, end: 20160414

REACTIONS (4)
  - Stomatitis [None]
  - Fatigue [None]
  - White blood cell count decreased [None]
  - Alopecia [None]

NARRATIVE: CASE EVENT DATE: 20160411
